FAERS Safety Report 22371294 (Version 10)
Quarter: 2024Q2

REPORT INFORMATION
  Report Type: Spontaneous
  Country: BR (occurrence: BR)
  Receive Date: 20230526
  Receipt Date: 20240617
  Transmission Date: 20240716
  Serious: Yes (Other)
  Sender: FDA-Public Use
  Company Number: BR-GLAXOSMITHKLINE-BR2017GSK152546

PATIENT

DRUGS (9)
  1. BENLYSTA [Suspect]
     Active Substance: BELIMUMAB
     Indication: Systemic lupus erythematosus
     Dosage: UNK 3 X 120 MG,EVERY 45 DAYS
     Route: 042
     Dates: start: 20170919
  2. BENLYSTA [Suspect]
     Active Substance: BELIMUMAB
     Dosage: 120 MG
     Route: 042
  3. BENLYSTA [Suspect]
     Active Substance: BELIMUMAB
     Dosage: 600 MG, UNK (3 X 120 MG), EVERY 45 DAYS
  4. BENLYSTA [Suspect]
     Active Substance: BELIMUMAB
     Dosage: 300 MG
     Route: 042
  5. BENLYSTA [Suspect]
     Active Substance: BELIMUMAB
     Dosage: 360 MG
     Route: 042
  6. VICKS 44 E COUGH AND CHEST CONGESTION RELIEF [Suspect]
     Active Substance: DEXTROMETHORPHAN HYDROBROMIDE\GUAIFENESIN
     Indication: Product used for unknown indication
     Dosage: UNK
  7. TYLENOL [Suspect]
     Active Substance: ACETAMINOPHEN
     Indication: Product used for unknown indication
     Dosage: UNK
  8. HYDROXYCHLOROQUINE SULFATE [Concomitant]
     Active Substance: HYDROXYCHLOROQUINE SULFATE
     Indication: Product used for unknown indication
     Dosage: 400 MG
  9. METHOTREXATE [Concomitant]
     Active Substance: METHOTREXATE
     Indication: Product used for unknown indication
     Dosage: 2.5 MG

REACTIONS (19)
  - Immunodeficiency [Not Recovered/Not Resolved]
  - Influenza [Recovered/Resolved]
  - Pyrexia [Recovered/Resolved]
  - Productive cough [Unknown]
  - Pain [Recovered/Resolved]
  - Rhinitis [Recovered/Resolved]
  - Cough [Not Recovered/Not Resolved]
  - Rhinorrhoea [Recovered/Resolved]
  - Coronavirus infection [Unknown]
  - Throat clearing [Not Recovered/Not Resolved]
  - Throat irritation [Unknown]
  - Somnolence [Unknown]
  - Discouragement [Unknown]
  - Fatigue [Unknown]
  - Incorrect dose administered [Unknown]
  - Overdose [Unknown]
  - Product dose omission issue [Unknown]
  - Inappropriate schedule of product administration [Unknown]
  - Off label use [Unknown]

NARRATIVE: CASE EVENT DATE: 20211219
